FAERS Safety Report 7217215-X (Version None)
Quarter: 2011Q1

REPORT INFORMATION
  Report Type: 
  Country: None (occurrence: None)
  Receive Date: 20110110
  Receipt Date: 20110104
  Transmission Date: 20110831
  Serious: Yes (Other)
  Sender: FDA-Public Use
  Company Number: US-JNJFOC-20080903776

PATIENT
  Sex: Female

DRUGS (4)
  1. RISPERDAL CONSTA [Suspect]
     Indication: PRODUCT USED FOR UNKNOWN INDICATION
  2. RISPERDAL [Suspect]
     Indication: PSYCHOTIC DISORDER
  3. HALDOL [Suspect]
     Indication: PRODUCT USED FOR UNKNOWN INDICATION
     Route: 065
  4. RISPERDAL [Suspect]
     Indication: HALLUCINATION

REACTIONS (3)
  - BLOOD PROLACTIN INCREASED [None]
  - GALACTORRHOEA [None]
  - PITUITARY TUMOUR [None]
